FAERS Safety Report 18666733 (Version 2)
Quarter: 2021Q2

REPORT INFORMATION
  Report Type: Spontaneous
  Country: ES (occurrence: ES)
  Receive Date: 20201227
  Receipt Date: 20210602
  Transmission Date: 20210717
  Serious: Yes (Other)
  Sender: FDA-Public Use
  Company Number: ES-BAUSCH-BL-2020-038287

PATIENT
  Sex: Male

DRUGS (5)
  1. HEPARIN [Interacting]
     Active Substance: HEPARIN SODIUM
     Indication: PRODUCT USED FOR UNKNOWN INDICATION
     Route: 065
  2. ESCITALOPRAM [Concomitant]
     Active Substance: ESCITALOPRAM OXALATE
     Indication: DEPRESSION
     Dosage: 10 UNK, QD
     Route: 065
     Dates: start: 20190604
  3. SINTROM [Interacting]
     Active Substance: ACENOCOUMAROL
     Indication: PULMONARY EMBOLISM
     Route: 065
     Dates: start: 20201120
  4. PREDNISOLONE. [Suspect]
     Active Substance: PREDNISOLONE
     Indication: FACIAL PARALYSIS
     Dosage: 2 UNK
     Route: 065
     Dates: start: 20201201, end: 20201222
  5. ATORVASTATIN [Concomitant]
     Active Substance: ATORVASTATIN
     Indication: BLOOD CHOLESTEROL INCREASED
     Dosage: 40 UNK, QD FOR CHOLESTERAOL ELEVATED
     Route: 065
     Dates: start: 20110724

REACTIONS (5)
  - Facial paralysis [Recovered/Resolved]
  - Abdominal wall haemorrhage [Recovering/Resolving]
  - Product use issue [Unknown]
  - Fear [Recovered/Resolved]
  - Drug interaction [Unknown]

NARRATIVE: CASE EVENT DATE: 20201201
